FAERS Safety Report 20153452 (Version 2)
Quarter: 2022Q1

REPORT INFORMATION
  Report Type: Report from Study
  Country: US (occurrence: US)
  Receive Date: 20211206
  Receipt Date: 20220110
  Transmission Date: 20220423
  Serious: Yes (Death)
  Sender: FDA-Public Use
  Company Number: US-BAUSCH-BL-2021-040365

PATIENT
  Age: 69 Year
  Sex: Male
  Weight: 96.702 kg

DRUGS (1)
  1. XIFAXAN [Suspect]
     Active Substance: RIFAXIMIN
     Indication: Hepatic cirrhosis
     Route: 065

REACTIONS (3)
  - Pneumonia [Fatal]
  - Non-alcoholic steatohepatitis [Fatal]
  - Chronic kidney disease [Fatal]
